FAERS Safety Report 7175885-9 (Version None)
Quarter: 2010Q4

REPORT INFORMATION
  Report Type: 
  Country: None (occurrence: None)
  Receive Date: 20101220
  Receipt Date: 20100508
  Transmission Date: 20110411
  Serious: No
  Sender: FDA-Public Use
  Company Number: US-AMGEN-TCS402887

PATIENT

DRUGS (2)
  1. ENBREL [Suspect]
     Indication: RHEUMATOID ARTHRITIS
     Dosage: 50 MG, QWK
     Route: 058
     Dates: start: 20100301
  2. METHOTREXATE [Concomitant]
     Dosage: 10 MG, QWK
     Route: 048
     Dates: start: 20090109

REACTIONS (9)
  - ARTHRALGIA [None]
  - FATIGUE [None]
  - INJECTION SITE PAIN [None]
  - INJECTION SITE PRURITUS [None]
  - LYMPHADENOPATHY [None]
  - NAUSEA [None]
  - PAIN IN EXTREMITY [None]
  - RETCHING [None]
  - RHEUMATOID ARTHRITIS [None]
